FAERS Safety Report 4527760-3 (Version None)
Quarter: 2004Q4

REPORT INFORMATION
  Report Type: 
  Country: None (occurrence: None)
  Receive Date: 20041124
  Receipt Date: 20040805
  Transmission Date: 20050328
  Serious: Yes (Congenital Anomaly)
  Sender: FDA-Public Use
  Company Number: 310023K04USA

PATIENT
  Sex: Female

DRUGS (3)
  1. GONAL-F [Suspect]
     Indication: INFERTILITY
  2. OVIDREL [Suspect]
     Indication: INFERTILITY
  3. LUPRON [Concomitant]

REACTIONS (1)
  - ANAL ATRESIA [None]
